FAERS Safety Report 4853730-1 (Version None)
Quarter: 2005Q4

REPORT INFORMATION
  Report Type: 
  Country: None (occurrence: None)
  Receive Date: 20051214
  Receipt Date: 20051209
  Transmission Date: 20060501
  Serious: Yes (Hospitalization, Other)
  Sender: FDA-Public Use
  Company Number: US-ABBOTT-05P-163-0319111-00

PATIENT
  Sex: Female
  Weight: 71 kg

DRUGS (4)
  1. HUMIRA [Suspect]
     Indication: RHEUMATOID ARTHRITIS
     Route: 058
     Dates: start: 20030501, end: 20051001
  2. DILTIAZEM HYDROCHLORIDE [Concomitant]
     Indication: BLOOD PRESSURE INCREASED
     Route: 048
  3. LORAZEPAM [Concomitant]
     Indication: RELAXATION THERAPY
     Route: 048
  4. PAROXETINE HYDROCHLORIDE [Concomitant]
     Indication: DEPRESSION
     Route: 048
     Dates: start: 20050101

REACTIONS (6)
  - ASTHENIA [None]
  - COLONIC POLYP [None]
  - DIVERTICULITIS [None]
  - RENAL FAILURE [None]
  - SWELLING FACE [None]
  - WEIGHT DECREASED [None]
